FAERS Safety Report 5801387-5 (Version None)
Quarter: 2008Q2

REPORT INFORMATION
  Report Type: 
  Country: None (occurrence: None)
  Receive Date: 20080630
  Receipt Date: 20080624
  Transmission Date: 20081010
  Serious: Yes (Death, Hospitalization)
  Sender: FDA-Public Use
  Company Number: ADR1332008

PATIENT
  Age: 63 Year
  Sex: Male

DRUGS (9)
  1. SIMVASTATIN [Suspect]
  2. FUSIDIC ACID [Suspect]
     Indication: STAPHYLOCOCCAL INFECTION
     Dosage: ORAL
     Route: 048
  3. DESLORATADINE [Concomitant]
  4. ENALAPRIL MALEATE [Concomitant]
  5. DIPYRIDAMOLE [Concomitant]
  6. ASPIRIN [Concomitant]
  7. BISOPROLOL FUMARATE [Concomitant]
  8. RANITIDINE HCL [Concomitant]
  9. DICLOFENAC [Concomitant]

REACTIONS (2)
  - DRUG INTERACTION [None]
  - RHABDOMYOLYSIS [None]
